FAERS Safety Report 14581776 (Version 5)
Quarter: 2018Q2

REPORT INFORMATION
  Report Type: Spontaneous
  Country: JP (occurrence: JP)
  Receive Date: 20180228
  Receipt Date: 20180619
  Transmission Date: 20180711
  Serious: Yes (Hospitalization, Other)
  Sender: FDA-Public Use
  Company Number: JP-BRISTOL-MYERS SQUIBB COMPANY-BMS-2018-017877

PATIENT
  Age: 68 Year
  Sex: Female

DRUGS (1)
  1. OPDIVO [Suspect]
     Active Substance: NIVOLUMAB
     Indication: METASTATIC RENAL CELL CARCINOMA
     Dosage: UNK UNK, Q2WK
     Route: 041
     Dates: start: 20170412

REACTIONS (2)
  - Fulminant type 1 diabetes mellitus [Not Recovered/Not Resolved]
  - Silent thyroiditis [Recovered/Resolved]

NARRATIVE: CASE EVENT DATE: 20170425
